FAERS Safety Report 20244702 (Version 1)
Quarter: 2021Q4

REPORT INFORMATION
  Report Type: Spontaneous
  Country: FR (occurrence: FR)
  Receive Date: 20211229
  Receipt Date: 20211229
  Transmission Date: 20220304
  Serious: Yes (Hospitalization, Other)
  Sender: FDA-Public Use
  Company Number: FR-ABBVIE-21K-056-4213671-00

PATIENT
  Age: 6 Year
  Sex: Male
  Weight: 26 kg

DRUGS (4)
  1. VALPROATE SODIUM [Suspect]
     Active Substance: VALPROATE SODIUM
     Indication: Epilepsy
     Route: 048
     Dates: start: 2015
  2. CLOBAZAM [Suspect]
     Active Substance: CLOBAZAM
     Indication: Epilepsy
     Route: 048
     Dates: start: 2015
  3. DIACOMIT [Suspect]
     Active Substance: STIRIPENTOL
     Indication: Epilepsy
     Dosage: 850 MILLIGRAM, QD (425 MILLIGRAM TWICE A DAY THEN 250MILLIGRAM TWICE A DAY)
     Route: 048
     Dates: start: 2015, end: 2019
  4. DIACOMIT [Suspect]
     Active Substance: STIRIPENTOL
     Route: 048
     Dates: start: 2015, end: 2019

REACTIONS (1)
  - Neutropenia [Recovered/Resolved]

NARRATIVE: CASE EVENT DATE: 20180713
